FAERS Safety Report 9408097 (Version 3)
Quarter: 2014Q1

REPORT INFORMATION
  Report Type: Spontaneous
  Country: GB (occurrence: None)
  Receive Date: 20130716
  Receipt Date: 20140305
  Transmission Date: 20141002
  Serious: Yes (Death, Other)
  Sender: FDA-Public Use
  Company Number: AUR-APL-2013-05864

PATIENT
  Age: 69 Year
  Sex: Female

DRUGS (9)
  1. OLANZAPINE (OLANZAPINE) [Suspect]
     Indication: PRODUCT USED FOR UNKNOWN INDICATION
  2. SERTRALINE (SERTRALINE) [Suspect]
     Indication: PRODUCT USED FOR UNKNOWN INDICATION
  3. AMLODIPINE (AMLODIPINE) [Concomitant]
  4. ASPIRIN (ACETYLSALICYCLIC ACID) [Concomitant]
  5. CALCICHEW (CALCIUM CARBONATE) [Concomitant]
  6. CARBIMAZOLE (CARBIMAZOLE) [Concomitant]
  7. DIAZEPAM (DIAZEPAM) [Concomitant]
  8. SIMVASTATIN (SIMVASTATIN) [Concomitant]
  9. DONEPEZIL (DONEPEZIL) [Concomitant]

REACTIONS (3)
  - Fall [None]
  - Drug level increased [None]
  - Overdose [None]
